FAERS Safety Report 8961525 (Version 2)
Quarter: 2013Q1

REPORT INFORMATION
  Report Type: Report from Study
  Country: JP (occurrence: JP)
  Receive Date: 20121212
  Receipt Date: 20130128
  Transmission Date: 20140127
  Serious: Yes (Hospitalization, Other)
  Sender: FDA-Public Use
  Company Number: PHHY2012JP114090

PATIENT
  Age: 73 Year
  Sex: Female
  Weight: 36 kg

DRUGS (3)
  1. AFINITOR [Suspect]
     Indication: METASTATIC RENAL CELL CARCINOMA
     Dosage: 5 MG, UNK
     Route: 048
  2. AFINITOR [Suspect]
     Dosage: 10 MG, UNK
     Route: 048
  3. SUNITINIB MALATE [Concomitant]
     Indication: METASTATIC RENAL CELL CARCINOMA

REACTIONS (5)
  - Renal failure acute [Not Recovered/Not Resolved]
  - Haemoglobin decreased [Recovering/Resolving]
  - C-reactive protein increased [Unknown]
  - Stomatitis [Recovering/Resolving]
  - Epistaxis [Recovering/Resolving]
